FAERS Safety Report 5136278-9 (Version None)
Quarter: 2006Q4

REPORT INFORMATION
  Report Type: 
  Country: None (occurrence: None)
  Receive Date: 20061027
  Receipt Date: 20050906
  Transmission Date: 20070319
  Serious: Yes (Other)
  Sender: FDA-Public Use
  Company Number: US-GLAXOSMITHKLINE-A0573140A

PATIENT
  Age: 78 Year
  Sex: Female

DRUGS (7)
  1. ADVAIR HFA [Suspect]
     Indication: ASTHMA
     Dosage: 1PUFF TWICE PER DAY
     Route: 055
     Dates: start: 20050101
  2. SYNTHROID [Concomitant]
  3. ESTROGENS SOL/INJ [Concomitant]
  4. CHEMOTHERAPY [Concomitant]
  5. TAMOXIFEN CITRATE [Concomitant]
  6. HERBAL MEDICATION + MINERAL SUPPLEMENT + MULTIVITAMIN [Concomitant]
  7. LEVOTHYROXINE SODIUM [Concomitant]

REACTIONS (6)
  - ASTHMA [None]
  - BREAST CANCER [None]
  - FATIGUE [None]
  - INFLUENZA [None]
  - INSOMNIA [None]
  - PAIN [None]
